FAERS Safety Report 8074163-3 (Version None)
Quarter: 2012Q1

REPORT INFORMATION
  Report Type: 
  Country: None (occurrence: None)
  Receive Date: 20120126
  Receipt Date: 20120124
  Transmission Date: 20120608
  Serious: No
  Sender: FDA-Public Use
  Company Number: PR-BAYER-2012-008300

PATIENT
  Age: 54 Year
  Sex: Male
  Weight: 68.934 kg

DRUGS (4)
  1. ATIVAN [Concomitant]
  2. UROXATRAL [Concomitant]
  3. ULTRAVIST 150 [Suspect]
     Dosage: INJECTION RATE 3CC
     Route: 042
     Dates: start: 20120103, end: 20120103
  4. MEDROL [Concomitant]

REACTIONS (1)
  - RASH MACULO-PAPULAR [None]
